FAERS Safety Report 13422769 (Version 1)
Quarter: 2017Q2

REPORT INFORMATION
  Report Type: Spontaneous
  Country: US (occurrence: US)
  Receive Date: 20170407
  Receipt Date: 20170407
  Transmission Date: 20170830
  Serious: Yes (Hospitalization)
  Sender: FDA-Public Use
  Company Number: None

PATIENT
  Age: 69 Year
  Sex: Male
  Weight: 61 kg

DRUGS (1)
  1. HEPARIN [Suspect]
     Active Substance: HEPARIN SODIUM
     Indication: DEEP VEIN THROMBOSIS
     Dosage: 500 UNITS TID SQ
     Route: 058
     Dates: start: 20170307, end: 20170313

REACTIONS (2)
  - Heparin-induced thrombocytopenia [None]
  - Respiratory failure [None]

NARRATIVE: CASE EVENT DATE: 20170313
